FAERS Safety Report 11469177 (Version 2)
Quarter: 2015Q3

REPORT INFORMATION
  Report Type: Spontaneous
  Country: US (occurrence: US)
  Receive Date: 20150903
  Receipt Date: 20150903
  Transmission Date: 20151125
  Serious: No
  Sender: FDA-Public Use
  Company Number: US-ELI_LILLY_AND_COMPANY-US201110000339

PATIENT
  Age: 46 Year
  Sex: Male

DRUGS (3)
  1. RELAFEN [Concomitant]
     Active Substance: NABUMETONE
     Indication: PAIN
     Dosage: 750 MG, UNKNOWN
  2. CYMBALTA [Suspect]
     Active Substance: DULOXETINE HYDROCHLORIDE
     Dosage: 60 MG, UNK
     Dates: start: 201107
  3. DEXLANSOPRAZOLE [Concomitant]
     Active Substance: DEXLANSOPRAZOLE
     Indication: GASTROOESOPHAGEAL REFLUX DISEASE
     Dosage: 60 MG, UNK

REACTIONS (7)
  - Somnolence [Unknown]
  - Insomnia [Unknown]
  - Ejaculation delayed [Unknown]
  - Musculoskeletal pain [Unknown]
  - Hyperhidrosis [Unknown]
  - Memory impairment [Unknown]
  - Libido decreased [Unknown]
